FAERS Safety Report 8358611-7 (Version None)
Quarter: 2012Q2

REPORT INFORMATION
  Report Type: 
  Country: None (occurrence: None)
  Receive Date: 20120514
  Receipt Date: 20120504
  Transmission Date: 20120825
  Serious: Yes (Hospitalization)
  Sender: FDA-Public Use
  Company Number: US-ELI_LILLY_AND_COMPANY-US201205002158

PATIENT
  Sex: Female

DRUGS (2)
  1. METFORMIN HCL [Concomitant]
  2. BYETTA [Suspect]
     Route: 058

REACTIONS (1)
  - PNEUMONIA [None]
